FAERS Safety Report 18048785 (Version 1)
Quarter: 2020Q3

REPORT INFORMATION
  Report Type: Spontaneous
  Country: CN (occurrence: CN)
  Receive Date: 20200721
  Receipt Date: 20200721
  Transmission Date: 20201103
  Serious: Yes (Other)
  Sender: FDA-Public Use
  Company Number: CN-ROCHE-2644390

PATIENT
  Age: 36 Year
  Sex: Female

DRUGS (15)
  1. HERCEPTIN [Suspect]
     Active Substance: TRASTUZUMAB
     Route: 041
     Dates: start: 20190507, end: 20190617
  2. EPIRUBICIN [Concomitant]
     Active Substance: EPIRUBICIN
     Indication: INVASIVE DUCTAL BREAST CARCINOMA
  3. CISPLATIN. [Concomitant]
     Active Substance: CISPLATIN
     Dates: start: 20191023, end: 20191223
  4. CYCLOPHOSPHAMIDE. [Concomitant]
     Active Substance: CYCLOPHOSPHAMIDE
     Indication: INVASIVE DUCTAL BREAST CARCINOMA
  5. CAPECITABINE. [Concomitant]
     Active Substance: CAPECITABINE
     Indication: INVASIVE DUCTAL BREAST CARCINOMA
     Route: 048
     Dates: start: 20200606
  6. DOCETAXEL. [Concomitant]
     Active Substance: DOCETAXEL
     Indication: INVASIVE DUCTAL BREAST CARCINOMA
     Dates: start: 20181218, end: 20190425
  7. PYROTINIB [Concomitant]
     Active Substance: PYROTINIB
     Indication: INVASIVE DUCTAL BREAST CARCINOMA
     Dates: start: 20200606
  8. CARBOPLATIN. [Concomitant]
     Active Substance: CARBOPLATIN
     Indication: INVASIVE DUCTAL BREAST CARCINOMA
     Dates: start: 20181218, end: 20190425
  9. 5?FLUOROURACIL [Concomitant]
     Active Substance: FLUOROURACIL
     Indication: INVASIVE DUCTAL BREAST CARCINOMA
     Dates: start: 20190927
  10. HERCEPTIN [Suspect]
     Active Substance: TRASTUZUMAB
     Indication: INVASIVE DUCTAL BREAST CARCINOMA
     Route: 041
     Dates: start: 20181218, end: 20190425
  11. HERCEPTIN [Suspect]
     Active Substance: TRASTUZUMAB
     Route: 041
     Dates: start: 20190814, end: 20190828
  12. CISPLATIN. [Concomitant]
     Active Substance: CISPLATIN
     Indication: INVASIVE DUCTAL BREAST CARCINOMA
     Dates: start: 20190927
  13. TEGAFUR [Concomitant]
     Active Substance: TEGAFUR
     Indication: INVASIVE DUCTAL BREAST CARCINOMA
     Dates: start: 20191023, end: 20191223
  14. LETROZOLE. [Concomitant]
     Active Substance: LETROZOLE
     Route: 048
     Dates: start: 202001
  15. PIRARUBICIN [Concomitant]
     Active Substance: PIRARUBICIN
     Indication: INVASIVE DUCTAL BREAST CARCINOMA
     Dates: start: 20190927

REACTIONS (5)
  - Dizziness [Unknown]
  - Myelosuppression [Unknown]
  - Vomiting [Unknown]
  - Nausea [Unknown]
  - Anaemia [Unknown]
